FAERS Safety Report 9651927 (Version 1)
Quarter: 2013Q4

REPORT INFORMATION
  Report Type: Spontaneous
  Country: US (occurrence: US)
  Receive Date: 20131029
  Receipt Date: 20131029
  Transmission Date: 20140711
  Serious: No
  Sender: FDA-Public Use
  Company Number: US-ENDO PHARMACEUTICALS INC.-LEVE20130003

PATIENT
  Sex: Male

DRUGS (2)
  1. LEVETIRACETAM ORAL SOLUTION 100 MG/ML [Suspect]
     Indication: CONVULSION
     Route: 048
     Dates: start: 2011
  2. LEVETIRACETAM ORAL SOLUTION 100 MG/ML [Suspect]
     Route: 048

REACTIONS (4)
  - Aggression [Not Recovered/Not Resolved]
  - Depressed mood [Not Recovered/Not Resolved]
  - Affect lability [Not Recovered/Not Resolved]
  - Distractibility [Not Recovered/Not Resolved]
